FAERS Safety Report 6359172-4 (Version None)
Quarter: 2009Q3

REPORT INFORMATION
  Report Type: 
  Country: None (occurrence: None)
  Receive Date: 20090917
  Receipt Date: 20090908
  Transmission Date: 20100115
  Serious: Yes (Death, Hospitalization, Other)
  Sender: FDA-Public Use
  Company Number: AU-RANBAXY-2009US-27274

PATIENT

DRUGS (2)
  1. PARACETAMOL [Suspect]
     Indication: DRUG USE FOR UNKNOWN INDICATION
     Dosage: UNK, UNK
     Route: 065
  2. ACETYLCYSTEINE [Suspect]
     Indication: DRUG TOXICITY
     Dosage: 10 TIMES NORMAL DOSE
     Route: 042

REACTIONS (7)
  - ANURIA [None]
  - DISSEMINATED INTRAVASCULAR COAGULATION [None]
  - FLUSHING [None]
  - HAEMORRHAGE [None]
  - HEPATOTOXICITY [None]
  - HYPOTENSION [None]
  - OVERDOSE [None]
